FAERS Safety Report 8098456-9 (Version None)
Quarter: 2012Q1

REPORT INFORMATION
  Report Type: 
  Country: None (occurrence: None)
  Receive Date: 20120129
  Receipt Date: 20111003
  Transmission Date: 20120608
  Serious: No
  Sender: FDA-Public Use
  Company Number: US-ABBOTT-11P-163-0860287-00

PATIENT
  Age: 31 Year
  Sex: Female

DRUGS (1)
  1. HUMIRA [Suspect]
     Indication: ANKYLOSING SPONDYLITIS
     Dosage: INITIAL DOSE
     Dates: start: 20110930

REACTIONS (7)
  - INFLUENZA LIKE ILLNESS [None]
  - JOINT STIFFNESS [None]
  - INJECTION SITE PAIN [None]
  - PAIN [None]
  - JOINT SWELLING [None]
  - MOVEMENT DISORDER [None]
  - PYREXIA [None]
